FAERS Safety Report 4929786-4 (Version None)
Quarter: 2006Q1

REPORT INFORMATION
  Report Type: 
  Country: None (occurrence: None)
  Receive Date: 20060224
  Receipt Date: 20060213
  Transmission Date: 20060701
  Serious: Yes (Life-Threatening, Hospitalization)
  Sender: FDA-Public Use
  Company Number: 2006S1001281

PATIENT
  Sex: 0

DRUGS (1)
  1. CLONIDINE HYDROCHLORIDE TABLETS, USP (0.3 MG) [Suspect]
     Dosage: 0.3 MG;UNKNOWN;INTRA
     Route: 042

REACTIONS (3)
  - DRUG TOXICITY [None]
  - INCORRECT ROUTE OF DRUG ADMINISTRATION [None]
  - VICTIM OF CRIME [None]
